FAERS Safety Report 8266238-0 (Version None)
Quarter: 2012Q2

REPORT INFORMATION
  Report Type: 
  Country: None (occurrence: None)
  Receive Date: 20120406
  Receipt Date: 20120403
  Transmission Date: 20120825
  Serious: Yes (Other)
  Sender: FDA-Public Use
  Company Number: CN-PFIZER INC-2012083573

PATIENT
  Age: 29 Year
  Sex: Male

DRUGS (6)
  1. GATIFLOXACIN [Suspect]
     Indication: URETHRITIS
     Route: 048
  2. GATIFLOXACIN [Suspect]
     Route: 048
  3. CIPROFLOXACIN [Suspect]
     Indication: URETHRITIS
     Route: 048
  4. ROXITHROMYCIN [Suspect]
     Indication: URETHRITIS
     Route: 048
  5. MINOCYCLINE HYDROCHLORIDE [Suspect]
     Indication: URETHRITIS
     Route: 048
  6. AZITHROMYCIN [Suspect]
     Indication: URETHRITIS
     Route: 048

REACTIONS (1)
  - PROSTATE INFECTION [None]
